FAERS Safety Report 8904738 (Version 1)
Quarter: 2012Q4

REPORT INFORMATION
  Report Type: 
  Country: BE (occurrence: BE)
  Receive Date: 20121113
  Receipt Date: 20121113
  Transmission Date: 20130627
  Serious: Yes (Other)
  Sender: FDA-Public Use
  Company Number: PHHY2012BE102837

PATIENT
  Age: 54 Year
  Sex: Female

DRUGS (2)
  1. VANCOMYCIN [Suspect]
     Indication: FEBRILE NEUTROPENIA
     Dosage: 15 mg/kg, BID
  2. CEFEPIME [Concomitant]
     Indication: FEBRILE NEUTROPENIA
     Dosage: 2 g, TID

REACTIONS (14)
  - Hypersensitivity [Recovered/Resolved]
  - Pyrexia [Recovered/Resolved]
  - Chills [Recovered/Resolved]
  - Rash maculo-papular [Recovered/Resolved]
  - C-reactive protein increased [Recovered/Resolved]
  - Aspartate aminotransferase increased [Recovered/Resolved]
  - Alanine aminotransferase increased [Recovered/Resolved]
  - Blood lactate dehydrogenase increased [Recovered/Resolved]
  - Haemoglobin decreased [Recovered/Resolved]
  - Neutrophil count decreased [Recovered/Resolved]
  - Eosinophilia [Recovered/Resolved]
  - Erythema [Recovered/Resolved]
  - Subclavian vein thrombosis [Recovered/Resolved]
  - Jugular vein thrombosis [Recovered/Resolved]
